FAERS Safety Report 8273944-0 (Version None)
Quarter: 2012Q2

REPORT INFORMATION
  Report Type: 
  Country: None (occurrence: None)
  Receive Date: 20120411
  Receipt Date: 20120329
  Transmission Date: 20120825
  Serious: No
  Sender: FDA-Public Use
  Company Number: US-B.I. PHARMACEUTICALS,INC./RIDGEFIELD-2012-BP-03795BP

PATIENT
  Sex: Male

DRUGS (20)
  1. PROCARDIA XL [Concomitant]
     Indication: BLOOD PRESSURE
  2. OMEPRAZOLE (PRILOSEC) [Concomitant]
     Indication: GASTROOESOPHAGEAL REFLUX DISEASE
     Dosage: 20 MG
     Route: 048
  3. HYDROCHLOROTHIAZIDE (HYDRODIURIL) [Concomitant]
     Indication: BLOOD PRESSURE
     Dosage: 25 MG
     Route: 048
  4. LABETALOL (NORMODYNE) [Concomitant]
     Indication: BLOOD PRESSURE
  5. ASPIRIN [Concomitant]
     Indication: BLOOD PRESSURE
     Dosage: 81 MG
     Route: 048
  6. ZESTRIL [Concomitant]
     Indication: BLOOD PRESSURE
  7. ZESTRIL [Concomitant]
     Indication: HYPERTENSION
     Dosage: 40 MG
     Route: 048
  8. EPLERENONE (INSPRA) [Concomitant]
     Indication: BLOOD PRESSURE
  9. FORADIL [Concomitant]
     Indication: CHRONIC OBSTRUCTIVE PULMONARY DISEASE
     Dosage: 2 PUF
     Route: 055
  10. CALCIUM 600 + D [Concomitant]
     Route: 048
  11. ASMANEX TWISTHALER [Concomitant]
     Indication: CHRONIC OBSTRUCTIVE PULMONARY DISEASE
     Dosage: 440 MCG
     Route: 055
  12. SPIRIVA [Suspect]
     Indication: CHRONIC OBSTRUCTIVE PULMONARY DISEASE
     Dosage: 18 MCG
     Route: 055
     Dates: start: 20110504, end: 20120201
  13. ASMANEX TWISTHALER [Concomitant]
     Indication: CHRONIC OBSTRUCTIVE PULMONARY DISEASE
     Dosage: 440 MCG
     Route: 055
  14. METFORMIN XR (GLUCOPHAGE XR) [Concomitant]
     Indication: DIABETES MELLITUS
     Dosage: 500 MG
     Route: 048
  15. ZOCOR [Concomitant]
     Indication: BLOOD CHOLESTEROL INCREASED
     Dosage: 40 NR
     Route: 048
  16. EPLERENONE (INSPRA) [Concomitant]
     Indication: ADRENAL GLAND INJURY
     Dosage: 100 MG
     Route: 048
  17. PROCARDIA XL [Concomitant]
     Indication: HYPERTENSION
     Dosage: 180 MG
     Route: 048
  18. MULTI-VITAMIN [Concomitant]
     Route: 048
  19. LABETALOL (NORMODYNE) [Concomitant]
     Indication: HYPERTENSION
     Dosage: 400 MG
     Route: 048
  20. VARDENAFIL HYDROCHLORIDE (LEVITRA) [Concomitant]
     Indication: ERECTILE DYSFUNCTION
     Route: 048

REACTIONS (1)
  - FEELING ABNORMAL [None]
